FAERS Safety Report 7325427-X (Version None)
Quarter: 2011Q1

REPORT INFORMATION
  Report Type: 
  Country: None (occurrence: None)
  Receive Date: 20110302
  Receipt Date: 20100824
  Transmission Date: 20110831
  Serious: Yes (Hospitalization, Other)
  Sender: FDA-Public Use
  Company Number: US-BAYER-201012962NA

PATIENT
  Sex: Female
  Weight: 96.599 kg

DRUGS (7)
  1. DROSPIRENONE AND ETHINYL ESTRADIOL [Suspect]
     Indication: CONTRACEPTION
     Route: 048
     Dates: start: 20081007, end: 20091201
  2. DROSPIRENONE AND ETHINYL ESTRADIOL [Suspect]
     Indication: ACNE
  3. YAZ [Suspect]
     Indication: CONTRACEPTION
     Route: 048
     Dates: start: 20081007, end: 20091201
  4. YAZ [Suspect]
     Indication: ACNE
  5. YASMIN [Suspect]
     Dosage: UNK
     Dates: start: 20070911, end: 20071108
  6. RITALIN [Concomitant]
     Route: 048
  7. ALBUTEROL SULFATE [Concomitant]
     Dosage: EVERY OTHER MONTH
     Route: 055

REACTIONS (9)
  - CHOLECYSTITIS CHRONIC [None]
  - ABDOMINAL PAIN UPPER [None]
  - ABDOMINAL DISTENSION [None]
  - DIZZINESS [None]
  - CHOLELITHIASIS [None]
  - CHILLS [None]
  - CHOLESTEROSIS [None]
  - POLLAKIURIA [None]
  - NAUSEA [None]
